FAERS Safety Report 9278567 (Version 1)
Quarter: 2013Q2

REPORT INFORMATION
  Report Type: Spontaneous
  Country: GB (occurrence: GB)
  Receive Date: 20130508
  Receipt Date: 20130508
  Transmission Date: 20140414
  Serious: Yes (Other)
  Sender: FDA-Public Use
  Company Number: GB-GLAXOSMITHKLINE-B0888500A

PATIENT
  Age: 37 Year
  Sex: Male
  Weight: 123.5 kg

DRUGS (4)
  1. ORLISTAT [Suspect]
  2. NORTRIPTYLINE [Concomitant]
     Dates: start: 20121210, end: 20130219
  3. BACLOFEN [Concomitant]
     Dates: start: 20121231, end: 20130318
  4. CO-CODAMOL [Concomitant]
     Dates: start: 20121231, end: 20130311

REACTIONS (2)
  - Jaundice cholestatic [Recovered/Resolved]
  - Faeces pale [Recovered/Resolved]
